FAERS Safety Report 13852131 (Version 1)
Quarter: 2017Q3

REPORT INFORMATION
  Report Type: Spontaneous
  Country: US (occurrence: US)
  Receive Date: 20170809
  Receipt Date: 20170809
  Transmission Date: 20171127
  Serious: Yes (Life-Threatening, Other)
  Sender: FDA-Public Use
  Company Number: None

PATIENT
  Age: 64 Year
  Sex: Female
  Weight: 53.52 kg

DRUGS (8)
  1. DIM [Concomitant]
  2. PYGNOGENOL [Concomitant]
  3. ESTRACE [Concomitant]
     Active Substance: ESTRADIOL
  4. PROTONIX [Suspect]
     Active Substance: PANTOPRAZOLE SODIUM
     Indication: OESOPHAGEAL IRRITATION
     Dosage: QUANTITY: TABLET?
     Dates: start: 20170314, end: 20170427
  5. VITAMIN B COMPLEX [Concomitant]
     Active Substance: CYANOCOBALAMIN\DEXPANTHENOL\NIACINAMIDE\PYRIDOXINE HYDROCHLORIDE\RIBOFLAVIN 5^-PHOSPHATE SODIUM\THIAMINE HYDROCHLORIDE\VITAMIN B COMPLEX
  6. MAGNESIUM [Concomitant]
     Active Substance: MAGNESIUM
  7. NAC [Concomitant]
  8. VITAMIN D3 [Concomitant]
     Active Substance: CHOLECALCIFEROL

REACTIONS (5)
  - Tachycardia [None]
  - Magnesium deficiency [None]
  - Increased appetite [None]
  - Palpitations [None]
  - Dehydration [None]

NARRATIVE: CASE EVENT DATE: 20170427
